FAERS Safety Report 6065315-2 (Version None)
Quarter: 2009Q1

REPORT INFORMATION
  Report Type: 
  Country: None (occurrence: None)
  Receive Date: 20090130
  Receipt Date: 20090114
  Transmission Date: 20090719
  Serious: No
  Sender: FDA-Public Use
  Company Number: TIF2009A00003

PATIENT
  Age: 88 Year
  Sex: Male

DRUGS (2)
  1. LIMPIDEX (LANSOPRAZOLE) [Suspect]
     Indication: GASTRIC DYSPLASIA
     Dosage: (15 MG) ; (30 MG)
     Dates: start: 20031224, end: 20081224
  2. LIMPIDEX (LANSOPRAZOLE) [Suspect]
     Indication: OESOPHAGITIS
     Dosage: (15 MG) ; (30 MG)
     Dates: start: 20031224, end: 20081224

REACTIONS (6)
  - CARDIAC DISORDER [None]
  - CONDITION AGGRAVATED [None]
  - COUGH [None]
  - MACULOPATHY [None]
  - OESOPHAGITIS [None]
  - VISUAL ACUITY REDUCED [None]
